FAERS Safety Report 8410300-6 (Version None)
Quarter: 2012Q2

REPORT INFORMATION
  Report Type: 
  Country: None (occurrence: None)
  Receive Date: 20120605
  Receipt Date: 20120531
  Transmission Date: 20120825
  Serious: Yes (Hospitalization, Other)
  Sender: FDA-Public Use
  Company Number: PHHY2009CA40543

PATIENT
  Sex: Male

DRUGS (16)
  1. LORAZEPAM [Concomitant]
  2. EXJADE [Suspect]
     Dosage: 1500 MG, QD
     Route: 048
     Dates: start: 20080101
  3. EXJADE [Suspect]
     Dosage: 2500 MG, QD
     Route: 048
     Dates: start: 20080501
  4. ANDROGEL [Concomitant]
  5. EXJADE [Suspect]
     Dosage: 2000 MG, UNK
     Dates: start: 20091101
  6. FOLIC ACID [Concomitant]
     Dosage: 5 MG, QD
     Route: 048
  7. SILDENAFIL [Concomitant]
  8. EXJADE [Suspect]
     Indication: THALASSAEMIA
     Dosage: 2.5 G, UNK
     Route: 048
     Dates: start: 20080107
  9. ACTONEL [Concomitant]
  10. CALCIUM [Concomitant]
  11. EXJADE [Suspect]
     Dosage: 1500 MG, UNK
     Route: 048
  12. VITAMIN D [Concomitant]
     Dosage: 1000 IU, QD
     Route: 048
  13. CETIRIZINE HCL [Concomitant]
     Dosage: 10 MG, QD
     Route: 048
  14. EXJADE [Suspect]
     Dosage: 2000 MG, QD
     Route: 048
     Dates: start: 20080101
  15. MAGNESIUM [Concomitant]
  16. RISEDRONIC ACID [Concomitant]

REACTIONS (18)
  - OEDEMA PERIPHERAL [None]
  - PRURITUS GENERALISED [None]
  - FALL [None]
  - ABDOMINAL DISCOMFORT [None]
  - PULMONARY FIBROSIS [None]
  - INSOMNIA [None]
  - STRESS [None]
  - ORAL CANDIDIASIS [None]
  - HEADACHE [None]
  - PULMONARY HYPERTENSION [None]
  - DIARRHOEA [None]
  - DENTAL CARIES [None]
  - CARDIOVASCULAR DISORDER [None]
  - HYPERTENSION [None]
  - TOOTHACHE [None]
  - SERUM FERRITIN INCREASED [None]
  - TIBIA FRACTURE [None]
  - URTICARIA [None]
